FAERS Safety Report 8351469-1 (Version None)
Quarter: 2012Q2

REPORT INFORMATION
  Report Type: 
  Country: None (occurrence: None)
  Receive Date: 20120510
  Receipt Date: 20090410
  Transmission Date: 20120825
  Serious: Yes (Other)
  Sender: FDA-Public Use
  Company Number: TW-ROCHE-627220

PATIENT
  Sex: Male

DRUGS (3)
  1. CISPLATIN [Suspect]
     Indication: LUNG ADENOCARCINOMA
     Route: 051
     Dates: end: 20090301
  2. GEMZAR [Suspect]
     Indication: LUNG ADENOCARCINOMA
     Route: 051
  3. AVASTIN [Suspect]
     Indication: LUNG ADENOCARCINOMA
     Route: 051

REACTIONS (1)
  - LUNG ADENOCARCINOMA [None]
